FAERS Safety Report 19825878 (Version 1)
Quarter: 2021Q3

REPORT INFORMATION
  Report Type: Spontaneous
  Country: US (occurrence: US)
  Receive Date: 20210914
  Receipt Date: 20210914
  Transmission Date: 20211014
  Serious: Yes (Hospitalization, Other)
  Sender: FDA-Public Use
  Company Number: US-MICRO LABS LIMITED-ML2021-01982

PATIENT
  Age: 19 Year
  Sex: Female
  Weight: 67 kg

DRUGS (1)
  1. BUPROPION HYDROCHLORIDE?(ANDA 207403) [Suspect]
     Active Substance: BUPROPION HYDROCHLORIDE
     Indication: DEPRESSION

REACTIONS (3)
  - Suicide attempt [Unknown]
  - Overdose [Unknown]
  - Serotonin syndrome [Unknown]
